FAERS Safety Report 6573761-3 (Version None)
Quarter: 2010Q1

REPORT INFORMATION
  Report Type: 
  Country: None (occurrence: None)
  Receive Date: 20100208
  Receipt Date: 20100127
  Transmission Date: 20100710
  Serious: Yes (Disabling)
  Sender: FDA-Public Use
  Company Number: B0631240A

PATIENT
  Sex: Female

DRUGS (6)
  1. ZANAMIVIR [Suspect]
     Indication: H1N1 INFLUENZA
     Dosage: 260MG TWICE PER DAY
     Route: 042
     Dates: start: 20091219, end: 20091224
  2. VORICONAZOLE [Suspect]
     Dosage: 90MG TWICE PER DAY
     Route: 042
     Dates: start: 20091218, end: 20091225
  3. CYCLOSPORINE [Suspect]
     Dosage: 15MG TWICE PER DAY
     Route: 042
     Dates: start: 20091203, end: 20091222
  4. MEROPENEM [Concomitant]
     Dosage: 300MG THREE TIMES PER DAY
     Route: 042
     Dates: start: 20091212, end: 20091226
  5. OSELTAMIVIR [Concomitant]
     Dosage: 30MG TWICE PER DAY
  6. PREDNISONE [Concomitant]

REACTIONS (4)
  - BLOOD CREATININE INCREASED [None]
  - HEPATIC ENZYME INCREASED [None]
  - RENAL INJURY [None]
  - RETROGRADE PORTAL VEIN FLOW [None]
